FAERS Safety Report 8388410-1 (Version None)
Quarter: 2012Q2

REPORT INFORMATION
  Report Type: 
  Country: None (occurrence: None)
  Receive Date: 20120525
  Receipt Date: 20120516
  Transmission Date: 20120825
  Serious: Yes (Hospitalization)
  Sender: FDA-Public Use
  Company Number: JP-FRI-1000030421

PATIENT
  Age: 95 Year
  Sex: Male

DRUGS (3)
  1. OLMESARTAN MEDOXOMIL [Concomitant]
  2. MEMANTINE HCL [Suspect]
     Dosage: 10 MG
     Dates: start: 20120502
  3. MEMANTINE HCL [Suspect]
     Indication: DEMENTIA ALZHEIMER'S TYPE
     Dosage: 5 MG
     Dates: start: 20120420, end: 20120501

REACTIONS (2)
  - BLOOD CREATINE PHOSPHOKINASE INCREASED [None]
  - RHABDOMYOLYSIS [None]
